FAERS Safety Report 10196244 (Version 4)
Quarter: 2014Q2

REPORT INFORMATION
  Report Type: Spontaneous
  Country: US (occurrence: US)
  Receive Date: 20140527
  Receipt Date: 20140618
  Transmission Date: 20141212
  Serious: Yes (Death)
  Sender: FDA-Public Use
  Company Number: US-JNJFOC-NSADSS2001027275

PATIENT
  Age: 56 Year
  Sex: Female

DRUGS (2)
  1. REMICADE [Suspect]
     Indication: RHEUMATOID ARTHRITIS
     Route: 041
     Dates: start: 200103, end: 200103
  2. METHOTREXATE [Concomitant]

REACTIONS (5)
  - Sudden death [Fatal]
  - Tuberculosis [Unknown]
  - Asthma [Unknown]
  - Anaemia [Unknown]
  - White blood cell count decreased [Unknown]
